FAERS Safety Report 21399186 (Version 3)
Quarter: 2023Q1

REPORT INFORMATION
  Report Type: Spontaneous
  Country: US (occurrence: US)
  Receive Date: 20221001
  Receipt Date: 20230323
  Transmission Date: 20230418
  Serious: Yes (Hospitalization)
  Sender: FDA-Public Use
  Company Number: US-GSKCCFUS-Case-01508169_AE-85768

PATIENT
  Sex: Female
  Weight: 44.9 kg

DRUGS (1)
  1. TRELEGY ELLIPTA [Suspect]
     Active Substance: FLUTICASONE FUROATE\UMECLIDINIUM BROMIDE\VILANTEROL TRIFENATATE
     Indication: Chronic obstructive pulmonary disease
     Dosage: 1 PUFF(S), QD 200/62.5/25 MCG
     Route: 055
     Dates: start: 202112, end: 202202

REACTIONS (3)
  - Drug ineffective [Recovered/Resolved]
  - Dyspnoea [Unknown]
  - Product complaint [Unknown]
